FAERS Safety Report 6453010-7 (Version None)
Quarter: 2009Q4

REPORT INFORMATION
  Report Type: 
  Country: None (occurrence: None)
  Receive Date: 20091124
  Receipt Date: 20090825
  Transmission Date: 20100525
  Serious: No
  Sender: FDA-Public Use
  Company Number: US-ABBOTT-09P-163-0594379-00

PATIENT
  Sex: Female
  Weight: 70.824 kg

DRUGS (5)
  1. TRICOR [Suspect]
     Indication: BLOOD TRIGLYCERIDES INCREASED
  2. ASPIRIN [Concomitant]
     Indication: CORONARY ARTERIAL STENT INSERTION
  3. ABILIFY [Concomitant]
     Indication: CONTRACEPTION
  4. LIPOFEN [Concomitant]
     Indication: BLOOD TRIGLYCERIDES INCREASED
  5. PRAVASTATIN [Concomitant]
     Indication: BLOOD TRIGLYCERIDES INCREASED

REACTIONS (1)
  - ADVERSE DRUG REACTION [None]
